FAERS Safety Report 5251335-4 (Version None)
Quarter: 2007Q1

REPORT INFORMATION
  Report Type: 
  Country: None (occurrence: None)
  Receive Date: 20070228
  Receipt Date: 20070213
  Transmission Date: 20070707
  Serious: Yes (Hospitalization, Other)
  Sender: FDA-Public Use
  Company Number: US-ELI_LILLY_AND_COMPANY-USA020413870

PATIENT
  Age: 83 Year
  Sex: Female

DRUGS (4)
  1. HUMALOG [Suspect]
     Dosage: UNK, UNKNOWN
     Dates: end: 20050101
  2. HUMALOG [Suspect]
     Indication: DIABETES MELLITUS
     Dosage: 17 U, DAILY (1/D)
     Route: 058
     Dates: start: 20020201
  3. LANTUS [Concomitant]
     Dosage: UNK, UNKNOWN
  4. ACTOS [Concomitant]
     Dosage: UNK, UNKNOWN

REACTIONS (14)
  - BALANCE DISORDER [None]
  - BLOOD GLUCOSE DECREASED [None]
  - BLOOD GLUCOSE INCREASED [None]
  - DIABETES MELLITUS INADEQUATE CONTROL [None]
  - EYE DISORDER [None]
  - EYE IRRITATION [None]
  - HEADACHE [None]
  - HERPES ZOSTER [None]
  - MYOCARDIAL INFARCTION [None]
  - NIGHT BLINDNESS [None]
  - PRURITUS [None]
  - VISION BLURRED [None]
  - VISUAL ACUITY REDUCED [None]
  - WALKING AID USER [None]
